FAERS Safety Report 7684552-4 (Version None)
Quarter: 2011Q3

REPORT INFORMATION
  Report Type: 
  Country: None (occurrence: None)
  Receive Date: 20110816
  Receipt Date: 20110809
  Transmission Date: 20111222
  Serious: No
  Sender: FDA-Public Use
  Company Number: US-BIOGENIDEC-2011BI030187

PATIENT
  Age: 62 Year
  Sex: Male

DRUGS (3)
  1. TYSABRI [Suspect]
     Indication: MULTIPLE SCLEROSIS
     Route: 042
     Dates: start: 20110720
  2. TYSABRI [Suspect]
     Route: 042
     Dates: start: 20061204, end: 20101103
  3. TYSABRI [Suspect]
     Route: 042

REACTIONS (2)
  - DRUG INEFFECTIVE [None]
  - CYSTITIS [None]
